FAERS Safety Report 6756865-1 (Version None)
Quarter: 2010Q2

REPORT INFORMATION
  Report Type: 
  Country: None (occurrence: None)
  Receive Date: 20100604
  Receipt Date: 20100523
  Transmission Date: 20101027
  Serious: Yes (Hospitalization)
  Sender: FDA-Public Use
  Company Number: US-WYE-H15304810

PATIENT
  Sex: Male

DRUGS (2)
  1. EFFEXOR [Suspect]
     Dosage: 75 MG, UNSPECIFIED FREQUENCY
  2. PRISTIQ [Suspect]
     Dosage: 50 MG, UNSPECIFIED FREQUENCY

REACTIONS (3)
  - HEMIPARESIS [None]
  - SPEECH DISORDER [None]
  - TREMOR [None]
